FAERS Safety Report 21045965 (Version 1)
Quarter: 2022Q3

REPORT INFORMATION
  Report Type: Spontaneous
  Country: TN (occurrence: TN)
  Receive Date: 20220706
  Receipt Date: 20220706
  Transmission Date: 20221026
  Serious: Yes (Other)
  Sender: FDA-Public Use
  Company Number: TN-NKFPHARMA-2022MPLIT00102

PATIENT
  Age: 75 Year
  Sex: Male

DRUGS (2)
  1. HEPARIN [Suspect]
     Active Substance: HEPARIN SODIUM
     Indication: Acute coronary syndrome
     Route: 065
  2. ENOXAPARIN [Concomitant]
     Active Substance: ENOXAPARIN
     Indication: Acute coronary syndrome
     Dosage: 6000 UI [60 MG]/0.6 ML TWICE PER DAY
     Route: 065

REACTIONS (1)
  - Bullous haemorrhagic dermatosis [Recovered/Resolved]
